FAERS Safety Report 10472271 (Version 1)
Quarter: 2014Q3

REPORT INFORMATION
  Report Type: Spontaneous
  Country: US (occurrence: None)
  Receive Date: 20140923
  Receipt Date: 20140923
  Transmission Date: 20150326
  Serious: No
  Sender: FDA-Public Use
  Company Number: None

PATIENT
  Age: 38 Year
  Sex: Male
  Weight: 136.08 kg

DRUGS (1)
  1. SEROQUEL XR [Suspect]
     Active Substance: QUETIAPINE FUMARATE
     Indication: SCHIZOPHRENIA
     Route: 048
     Dates: start: 20140704, end: 20140922

REACTIONS (9)
  - Skin exfoliation [None]
  - Dizziness [None]
  - Pruritus [None]
  - Visual impairment [None]
  - Hallucination [None]
  - Eructation [None]
  - Euphoric mood [None]
  - Dry mouth [None]
  - Urinary incontinence [None]

NARRATIVE: CASE EVENT DATE: 20140920
